FAERS Safety Report 8695908 (Version 2)
Quarter: 2013Q4

REPORT INFORMATION
  Report Type: Spontaneous
  Country: US (occurrence: US)
  Receive Date: 20120801
  Receipt Date: 20131107
  Transmission Date: 20140711
  Serious: Yes (Hospitalization)
  Sender: FDA-Public Use
  Company Number: US-009507513-1207USA009924

PATIENT
  Age: 71 Year
  Sex: Male

DRUGS (7)
  1. ZOCOR [Suspect]
     Dosage: 80 MG, QD
     Route: 048
  2. CARVEDILOL [Concomitant]
  3. PERINDOPRIL [Concomitant]
  4. GLIMEPIRIDE [Concomitant]
  5. METFORMIN [Concomitant]
  6. ASPIRIN [Concomitant]
  7. CYANOCOBALAMIN [Concomitant]

REACTIONS (3)
  - Hyperkalaemia [Unknown]
  - Blood creatinine increased [Unknown]
  - Rhabdomyolysis [Unknown]
